FAERS Safety Report 8006123-2 (Version None)
Quarter: 2011Q4

REPORT INFORMATION
  Report Type: 
  Country: None (occurrence: None)
  Receive Date: 20111226
  Receipt Date: 20111216
  Transmission Date: 20120403
  Serious: Yes (Hospitalization, Other)
  Sender: FDA-Public Use
  Company Number: US-PFIZER INC-2011302576

PATIENT
  Age: 26 Month
  Sex: Female
  Weight: 13.6 kg

DRUGS (3)
  1. ETANERCEPT [Suspect]
     Indication: JUVENILE ARTHRITIS
     Dosage: 10 MG, WEEKLY
     Route: 058
     Dates: start: 20100412, end: 20101122
  2. IBUPROFEN [Suspect]
     Indication: PYREXIA
     Dosage: EVERY 8 HOURS AS NEEDED
  3. METHOTREXATE SODIUM [Suspect]
     Indication: JUVENILE ARTHRITIS
     Dosage: 5 MG, WEEKLY
     Route: 058
     Dates: end: 20101122

REACTIONS (1)
  - VIRAL INFECTION [None]
